FAERS Safety Report 7081036-1 (Version None)
Quarter: 2010Q4

REPORT INFORMATION
  Report Type: 
  Country: None (occurrence: None)
  Receive Date: 20101103
  Receipt Date: 20101025
  Transmission Date: 20110411
  Serious: Yes (Hospitalization, Other)
  Sender: FDA-Public Use
  Company Number: US-ROCHE-733713

PATIENT
  Sex: Male

DRUGS (20)
  1. MYCOPHENOLATE MOFETIL [Suspect]
     Route: 065
     Dates: start: 20081105
  2. BELATACEPT [Suspect]
     Indication: RENAL TRANSPLANT
     Dosage: FORM: INFUSION (AS PER PROTOCOL)
     Route: 042
     Dates: start: 20090129
  3. PREDNISONE [Suspect]
     Indication: RENAL TRANSPLANT
     Route: 065
     Dates: start: 20100806
  4. LOPID [Concomitant]
     Dates: start: 20080308
  5. LEXAPRO [Concomitant]
     Dates: start: 20080424
  6. ACETAMINOPHEN [Concomitant]
     Dates: start: 20080425
  7. OMEPRAZOLE [Concomitant]
     Dates: start: 20080718
  8. TUMS ULTRA [Concomitant]
     Dates: start: 20090116
  9. AMLODIPINE [Concomitant]
     Dates: start: 20090403
  10. COUMADIN [Concomitant]
     Dates: start: 20090604
  11. COREG [Concomitant]
     Dates: start: 20090604
  12. ENALAPRIL MALEATE [Concomitant]
     Dates: start: 20090604
  13. CALCITRIOL [Concomitant]
     Dates: start: 20090403
  14. SPIRONOLACTONE [Concomitant]
     Dates: start: 20090706
  15. FLOMAX [Concomitant]
     Dates: start: 20091004
  16. CELEXA [Concomitant]
     Dates: start: 20100225
  17. ACTOS [Concomitant]
     Dates: start: 20100803
  18. FUROSEMIDE [Concomitant]
     Dates: start: 20100729
  19. BACTRIM [Concomitant]
     Dates: start: 20100730
  20. VALCYTE [Concomitant]
     Dates: start: 20100730

REACTIONS (2)
  - INCLUSION BODY MYOSITIS [None]
  - PNEUMONIA [None]
